FAERS Safety Report 13238222 (Version 1)
Quarter: 2017Q1

REPORT INFORMATION
  Report Type: Report from Study
  Country: US (occurrence: US)
  Receive Date: 20170216
  Receipt Date: 20170216
  Transmission Date: 20170428
  Serious: Yes (Other)
  Sender: FDA-Public Use
  Company Number: PHHY2015US042188

PATIENT
  Age: 56 Year
  Sex: Female

DRUGS (3)
  1. TRAZODONE [Concomitant]
     Active Substance: TRAZODONE HYDROCHLORIDE
     Indication: INSOMNIA
     Route: 065
     Dates: start: 20140610, end: 20140923
  2. GILENYA [Suspect]
     Active Substance: FINGOLIMOD HYDROCHLORIDE
     Indication: MULTIPLE SCLEROSIS
     Dosage: UNK
     Route: 048
     Dates: start: 20131217, end: 20140305
  3. RESTORIL [Concomitant]
     Active Substance: TEMAZEPAM
     Indication: INSOMNIA
     Route: 065
     Dates: start: 20140923

REACTIONS (7)
  - Mental status changes [Unknown]
  - Urinary tract infection [Recovered/Resolved]
  - Hallucination, visual [Not Recovered/Not Resolved]
  - Decubitus ulcer [Not Recovered/Not Resolved]
  - Infected skin ulcer [Not Recovered/Not Resolved]
  - Depression [Not Recovered/Not Resolved]
  - Urinary retention [Unknown]

NARRATIVE: CASE EVENT DATE: 20140610
